FAERS Safety Report 15304597 (Version 1)
Quarter: 2018Q3

REPORT INFORMATION
  Report Type: Spontaneous
  Country: US (occurrence: US)
  Receive Date: 20180809
  Receipt Date: 20180809
  Transmission Date: 20181010
  Serious: Yes (Hospitalization)
  Sender: FDA-Public Use
  Company Number: None

PATIENT
  Age: 32 Year
  Sex: Female
  Weight: 57.61 kg

DRUGS (2)
  1. MIRENA [Suspect]
     Active Substance: LEVONORGESTREL
  2. CITALOPRAM [Concomitant]
     Active Substance: CITALOPRAM HYDROBROMIDE

REACTIONS (7)
  - Hyperventilation [None]
  - Device dislocation [None]
  - Embedded device [None]
  - Uterine cervical erosion [None]
  - Crying [None]
  - Pain [None]
  - Cervix injury [None]

NARRATIVE: CASE EVENT DATE: 20180809
